FAERS Safety Report 20131964 (Version 3)
Quarter: 2021Q4

REPORT INFORMATION
  Report Type: Report from Study
  Country: CZ (occurrence: None)
  Receive Date: 20211130
  Receipt Date: 20211230
  Transmission Date: 20220304
  Serious: Yes (Hospitalization)
  Sender: FDA-Public Use
  Company Number: CZ-ROCHE-2962507

PATIENT
  Age: 43 Year
  Sex: Male
  Weight: 85 kg

DRUGS (46)
  1. OCRELIZUMAB [Suspect]
     Active Substance: OCRELIZUMAB
     Indication: Relapsing-remitting multiple sclerosis
     Dosage: INTRAVENOUS (IV) INFUSIONS ON DAYS 1 AND 15 FOR THE FIRST DOSE AND AS A SINGLE INFUSION FOR ALL SUBS
     Route: 042
     Dates: start: 20120308, end: 20120308
  2. OCRELIZUMAB [Suspect]
     Active Substance: OCRELIZUMAB
     Route: 042
     Dates: start: 20120322, end: 20120322
  3. OCRELIZUMAB [Suspect]
     Active Substance: OCRELIZUMAB
     Route: 042
     Dates: start: 20120823, end: 20120823
  4. OCRELIZUMAB [Suspect]
     Active Substance: OCRELIZUMAB
     Route: 042
     Dates: start: 20130207, end: 20130207
  5. OCRELIZUMAB [Suspect]
     Active Substance: OCRELIZUMAB
     Route: 042
     Dates: start: 20130725, end: 20130725
  6. PLACEBO [Suspect]
     Active Substance: UNSPECIFIED INGREDIENT
     Indication: Relapsing-remitting multiple sclerosis
     Dosage: INTERFERON BETA-1A SC INJECTIONS THREE TIMES PER WEEK (WITH PLACEBO INFUSIONS MATCHING OCRELIZUMAB I
     Route: 058
     Dates: start: 20120308
  7. PLACEBO [Suspect]
     Active Substance: UNSPECIFIED INGREDIENT
     Route: 058
     Dates: start: 20140110, end: 20140129
  8. OCRELIZUMAB [Suspect]
     Active Substance: OCRELIZUMAB
     Indication: Relapsing-remitting multiple sclerosis
     Route: 042
     Dates: start: 20140130, end: 20140130
  9. OCRELIZUMAB [Suspect]
     Active Substance: OCRELIZUMAB
     Route: 042
     Dates: start: 20140213, end: 20140213
  10. OCRELIZUMAB [Suspect]
     Active Substance: OCRELIZUMAB
     Route: 042
     Dates: start: 20140717, end: 20140717
  11. OCRELIZUMAB [Suspect]
     Active Substance: OCRELIZUMAB
     Route: 042
     Dates: start: 20150105, end: 20150105
  12. OCRELIZUMAB [Suspect]
     Active Substance: OCRELIZUMAB
     Route: 042
     Dates: start: 20150618, end: 20150618
  13. OCRELIZUMAB [Suspect]
     Active Substance: OCRELIZUMAB
     Route: 042
     Dates: start: 20151203, end: 20151203
  14. OCRELIZUMAB [Suspect]
     Active Substance: OCRELIZUMAB
     Route: 042
     Dates: start: 20160519, end: 20160519
  15. OCRELIZUMAB [Suspect]
     Active Substance: OCRELIZUMAB
     Route: 042
     Dates: start: 20161103, end: 20161103
  16. OCRELIZUMAB [Suspect]
     Active Substance: OCRELIZUMAB
     Route: 042
     Dates: start: 20170420, end: 20170420
  17. OCRELIZUMAB [Suspect]
     Active Substance: OCRELIZUMAB
     Route: 042
     Dates: start: 20171005, end: 20171005
  18. OCRELIZUMAB [Suspect]
     Active Substance: OCRELIZUMAB
     Route: 042
     Dates: start: 20180322, end: 20180322
  19. OCRELIZUMAB [Suspect]
     Active Substance: OCRELIZUMAB
     Route: 042
     Dates: start: 20180906, end: 20180906
  20. OCRELIZUMAB [Suspect]
     Active Substance: OCRELIZUMAB
     Route: 042
     Dates: start: 20190221, end: 20190221
  21. OCRELIZUMAB [Suspect]
     Active Substance: OCRELIZUMAB
     Route: 042
     Dates: start: 20190808, end: 20190808
  22. OCRELIZUMAB [Suspect]
     Active Substance: OCRELIZUMAB
     Route: 042
     Dates: start: 20200123, end: 20200123
  23. OCRELIZUMAB [Suspect]
     Active Substance: OCRELIZUMAB
     Route: 042
     Dates: start: 20200709, end: 20200709
  24. OCRELIZUMAB [Suspect]
     Active Substance: OCRELIZUMAB
     Route: 042
     Dates: start: 20201222, end: 20201222
  25. OCRELIZUMAB [Suspect]
     Active Substance: OCRELIZUMAB
     Route: 042
     Dates: start: 20210805, end: 20210805
  26. PARALEN (CZECH REPUBLIC) [Concomitant]
     Indication: Premedication
     Dosage: SUBSEQUENT DOSE: 22MAR2012, 23AUG2012, 07FEB2013, 25JUL2013, 30JAN2014, 13FEB2014, 17JUL2014, 05JAN2
     Dates: start: 20120308
  27. CETIRIZINE HYDROCHLORIDE [Concomitant]
     Active Substance: CETIRIZINE HYDROCHLORIDE
     Indication: Premedication
     Dosage: SUBSEQUENT DOSE: 22MAR2012, 23AUG2012, 07FEB2013, 25JUL2013, 30JAN2014, 13FEB2014, 17JUL2014, 05JAN2
     Dates: start: 20120308
  28. METHYLPREDNISOLONE [Concomitant]
     Active Substance: METHYLPREDNISOLONE
     Indication: Premedication
     Dosage: SUBSEQUENT DOSE: 22MAR2012, 23AUG2012, 07FEB2013, 25JUL2013, 30JAN2014, 13FEB2014, 17JUL2014, 05JAN2
     Dates: start: 20120308, end: 20120308
  29. YOHIMBINE [Concomitant]
     Active Substance: YOHIMBINE
     Indication: Erectile dysfunction
     Dates: start: 20140210
  30. OMEPRAZOLE [Concomitant]
     Active Substance: OMEPRAZOLE
     Indication: Gastrointestinal disorder prophylaxis
     Dates: start: 20211013, end: 20211018
  31. IGAMPLIA [Concomitant]
     Indication: Hypogammaglobulinaemia
     Dates: start: 20191119, end: 20200305
  32. IGAMPLIA [Concomitant]
     Dates: start: 20210114
  33. IGAMPLIA [Concomitant]
     Dates: start: 20210930, end: 20210930
  34. IGAMPLIA [Concomitant]
     Dates: start: 20211102, end: 20211102
  35. SOLU-MEDROL [Concomitant]
     Active Substance: METHYLPREDNISOLONE SODIUM SUCCINATE
     Dates: start: 20211013, end: 20211018
  36. BACLOFEN [Concomitant]
     Active Substance: BACLOFEN
     Indication: Muscle spasms
     Dates: start: 20190726
  37. ZOLPIDEM TARTRATE [Concomitant]
     Active Substance: ZOLPIDEM TARTRATE
  38. VESICARE [Concomitant]
     Active Substance: SOLIFENACIN SUCCINATE
     Dates: start: 20210630
  39. NADROPARIN CALCIUM [Concomitant]
     Active Substance: NADROPARIN CALCIUM
     Dates: start: 20211105, end: 20211110
  40. DIOSMIN\HESPERIDIN [Concomitant]
     Active Substance: DIOSMIN\HESPERIDIN
     Indication: Thrombosis
     Dates: start: 20211110
  41. ELIQUIS [Concomitant]
     Active Substance: APIXABAN
     Indication: Thrombosis
     Dates: start: 20211110
  42. VIGANTOL [Concomitant]
     Dosage: 35 DROPS
     Dates: start: 20070919, end: 20170630
  43. VIGANTOL [Concomitant]
     Dates: start: 20170701, end: 20171017
  44. VIGANTOL [Concomitant]
     Dates: start: 20171018
  45. CASIRIVIMAB [Concomitant]
     Active Substance: CASIRIVIMAB
     Indication: COVID-19
  46. IMDEVIMAB [Concomitant]
     Active Substance: IMDEVIMAB

REACTIONS (1)
  - Infective thrombosis [Recovered/Resolved]

NARRATIVE: CASE EVENT DATE: 20211020
